FAERS Safety Report 5140902-4 (Version None)
Quarter: 2006Q4

REPORT INFORMATION
  Report Type: 
  Country: None (occurrence: None)
  Receive Date: 20060905
  Receipt Date: 20060629
  Transmission Date: 20070319
  Serious: No
  Sender: FDA-Public Use
  Company Number: 35743

PATIENT
  Age: 70 Year
  Sex: Female

DRUGS (1)
  1. NEVANAC [Suspect]
     Indication: IRITIS
     Dosage: 1 GTT BID OPHT
     Route: 047

REACTIONS (1)
  - ULCERATIVE KERATITIS [None]
